FAERS Safety Report 24642657 (Version 1)
Quarter: 2024Q4

REPORT INFORMATION
  Report Type: Spontaneous
  Country: CA (occurrence: CA)
  Receive Date: 20241120
  Receipt Date: 20241120
  Transmission Date: 20250115
  Serious: Yes (Other)
  Sender: CSL BEHRING
  Company Number: CA-BEH-2024185477

PATIENT
  Age: 26 Year
  Sex: Female

DRUGS (4)
  1. ALBUMIN HUMAN [Suspect]
     Active Substance: ALBUMIN HUMAN
     Indication: Fluid replacement
     Dosage: 1 DF, QD (1 EVERY 1 DAY)
     Route: 042
  2. HEPARIN SODIUM [Suspect]
     Active Substance: HEPARIN SODIUM
     Indication: Prophylaxis
     Dosage: 5000 IU, SOLUTION INTRAVENOUS
     Route: 042
  3. TINZAPARIN [Suspect]
     Active Substance: TINZAPARIN
     Indication: Product used for unknown indication
     Dosage: 4500 IU, QD, 1 EVERY 1 DAY
     Route: 058
  4. TINZAPARIN [Suspect]
     Active Substance: TINZAPARIN
     Dosage: 10000 IU, QD, 1 EVERY 1 DAY
     Route: 058

REACTIONS (1)
  - Embolism [Unknown]
